FAERS Safety Report 24392408 (Version 1)
Quarter: 2024Q4

REPORT INFORMATION
  Report Type: Report from Study
  Country: BY (occurrence: BY)
  Receive Date: 20241003
  Receipt Date: 20241003
  Transmission Date: 20250115
  Serious: Yes (Death, Life-Threatening)
  Sender: MYLAN
  Company Number: BY-MYLANLABS-2024M1088312

PATIENT
  Age: 45 Year
  Sex: Female
  Weight: 47 kg

DRUGS (10)
  1. PRETOMANID [Suspect]
     Active Substance: PRETOMANID
     Indication: Product used for unknown indication
     Dosage: 200 MILLIGRAM, QD
     Route: 048
     Dates: start: 20240111
  2. BEDAQUILINE [Suspect]
     Active Substance: BEDAQUILINE
     Indication: Product used for unknown indication
     Dosage: 400 MILLIGRAM, QD (OD) FOR 2 WEEKS
     Route: 048
     Dates: start: 20240111
  3. BEDAQUILINE [Suspect]
     Active Substance: BEDAQUILINE
     Dosage: 200 MILLIGRAM, 3XW (TIW)
     Route: 048
  4. LINEZOLID [Suspect]
     Active Substance: LINEZOLID
     Indication: Product used for unknown indication
     Dosage: 600 MILLIGRAM, QD
     Route: 048
     Dates: start: 20240111
  5. LINEZOLID [Suspect]
     Active Substance: LINEZOLID
     Dosage: 300 MILLIGRAM, QD
     Route: 048
     Dates: start: 20240116
  6. CLOFAZIMINE [Suspect]
     Active Substance: CLOFAZIMINE
     Indication: Product used for unknown indication
     Dosage: 100 MILLIGRAM, QD
     Route: 048
     Dates: start: 20240111
  7. FOLIC ACID [Concomitant]
     Active Substance: FOLIC ACID
     Indication: Anaemia
     Dosage: 8 MILLIGRAM, QD
     Route: 048
     Dates: start: 20240104
  8. CYANOCOBALAMIN [Concomitant]
     Active Substance: CYANOCOBALAMIN
     Indication: Anaemia
     Dosage: 200 MICROGRAM, QD
     Route: 030
     Dates: start: 20240104
  9. COTRIMOXAZOLE [Concomitant]
     Active Substance: SULFAMETHOXAZOLE\TRIMETHOPRIM
     Indication: Prophylaxis
     Dosage: 960 MILLIGRAM, QD
     Route: 048
     Dates: start: 20231214, end: 20240123
  10. FLUCONAZOLE [Concomitant]
     Active Substance: FLUCONAZOLE
     Indication: Prophylaxis
     Dosage: UNK
     Route: 065
     Dates: start: 20240111

REACTIONS (3)
  - Cerebral toxoplasmosis [Fatal]
  - Progressive multifocal leukoencephalopathy [Fatal]
  - Anaemia [Not Recovered/Not Resolved]

NARRATIVE: CASE EVENT DATE: 20240115
